FAERS Safety Report 12698818 (Version 4)
Quarter: 2016Q4

REPORT INFORMATION
  Report Type: Spontaneous
  Country: US (occurrence: US)
  Receive Date: 20160830
  Receipt Date: 20161007
  Transmission Date: 20170207
  Serious: No
  Sender: FDA-Public Use
  Company Number: US-GLAXOSMITHKLINE-US2016120361

PATIENT
  Age: 55 Year
  Sex: Female
  Weight: 68.27 kg

DRUGS (5)
  1. VENTOLIN HFA [Suspect]
     Active Substance: ALBUTEROL SULFATE
     Indication: WHEEZING
     Dosage: 2 PUFF(S), PRN
     Route: 055
     Dates: start: 201608, end: 201608
  2. PREMARIN [Concomitant]
     Active Substance: ESTROGENS, CONJUGATED
  3. METOPROLOL ER [Concomitant]
     Active Substance: METOPROLOL SUCCINATE
  4. ENDOCET [Concomitant]
     Active Substance: ACETAMINOPHEN\OXYCODONE HYDROCHLORIDE
  5. VENTOLIN HFA [Suspect]
     Active Substance: ALBUTEROL SULFATE
     Indication: DYSPNOEA
     Dosage: 2 PUFF(S), PRN
     Route: 055
     Dates: start: 20160224, end: 20160321

REACTIONS (2)
  - Product quality issue [Unknown]
  - Cough [Recovered/Resolved]

NARRATIVE: CASE EVENT DATE: 201608
